FAERS Safety Report 24622171 (Version 1)
Quarter: 2024Q4

REPORT INFORMATION
  Report Type: Spontaneous
  Country: PL (occurrence: PL)
  Receive Date: 20241114
  Receipt Date: 20241114
  Transmission Date: 20250115
  Serious: Yes (Hospitalization)
  Sender: ABBVIE
  Company Number: None

PATIENT
  Age: 83 Year
  Sex: Female

DRUGS (9)
  1. ESCITALOPRAM [Suspect]
     Active Substance: ESCITALOPRAM OXALATE
     Indication: Behaviour disorder
     Dosage: 1/2 - 0 - 0
     Route: 048
  2. RAMIPRIL [Suspect]
     Active Substance: RAMIPRIL
     Indication: Hypertension
     Dosage: 0-0-1, STRENGTH 10 MG
     Route: 048
  3. XARELTO [Concomitant]
     Active Substance: RIVAROXABAN
     Indication: Atrial fibrillation
     Dosage: 1-0-0
     Route: 048
     Dates: end: 20201214
  4. ROSUVASTATIN CALCIUM [Concomitant]
     Active Substance: ROSUVASTATIN CALCIUM
     Indication: Hyperlipidaemia
     Dosage: 0-0-1
     Route: 048
  5. COGITON [Concomitant]
     Indication: Dementia
     Dosage: 0-0-1
     Route: 048
  6. MEMANTINE HYDROCHLORIDE [Concomitant]
     Active Substance: MEMANTINE HYDROCHLORIDE
     Indication: Dementia Alzheimer^s type
     Dosage: 0-0-1; 20 MG FILM-COATED TABLETS
     Route: 048
  7. EPLERENONE [Concomitant]
     Active Substance: EPLERENONE
     Indication: Dressler^s syndrome
     Dosage: 0-1-0
     Route: 048
  8. AMLODIPINE BESYLATE [Suspect]
     Active Substance: AMLODIPINE BESYLATE
     Indication: Hypertension
     Dosage: 1-0-0; STRENGTH: 5 MG
     Route: 048
  9. CARVEDILOL [Suspect]
     Active Substance: CARVEDILOL
     Indication: Hypertension
     Dosage: 1/2 - 0 - 1/2; STRENGTH 6,25 MG
     Route: 048

REACTIONS (2)
  - Femur fracture [Recovering/Resolving]
  - Product use in unapproved indication [Unknown]

NARRATIVE: CASE EVENT DATE: 20201215
